FAERS Safety Report 8274780-1 (Version None)
Quarter: 2012Q2

REPORT INFORMATION
  Report Type: 
  Country: None (occurrence: None)
  Receive Date: 20120411
  Receipt Date: 20120401
  Transmission Date: 20120825
  Serious: Yes (Hospitalization)
  Sender: FDA-Public Use
  Company Number: DE-ELI_LILLY_AND_COMPANY-DE201204000289

PATIENT
  Age: 62 Year
  Sex: Male
  Weight: 90 kg

DRUGS (4)
  1. EFFIENT [Suspect]
     Indication: ACUTE CORONARY SYNDROME
     Dosage: 60 MG, SINGLE LOADING DOSE
     Dates: start: 20110421, end: 20110421
  2. ASPIRIN [Concomitant]
     Dosage: 300-500 MG, SINGLE LOADING DOSE
  3. ASPIRIN [Concomitant]
     Dosage: 100 MG, QD
  4. EFFIENT [Suspect]
     Dosage: 10 MG, QD

REACTIONS (5)
  - GASTRITIS [None]
  - RECTAL LESION [None]
  - HIATUS HERNIA [None]
  - ANAL HAEMORRHAGE [None]
  - GASTROOESOPHAGEAL REFLUX DISEASE [None]
